FAERS Safety Report 15206206 (Version 3)
Quarter: 2018Q4

REPORT INFORMATION
  Report Type: Report from Study
  Country: US (occurrence: US)
  Receive Date: 20180727
  Receipt Date: 20181030
  Transmission Date: 20190204
  Serious: Yes (Other)
  Sender: FDA-Public Use
  Company Number: PHHY2018US052458

PATIENT
  Age: 51 Year
  Sex: Female

DRUGS (1)
  1. GILENYA [Suspect]
     Active Substance: FINGOLIMOD HYDROCHLORIDE
     Indication: MULTIPLE SCLEROSIS
     Dosage: UNK, QD
     Route: 048

REACTIONS (16)
  - Fall [Recovered/Resolved]
  - Gait disturbance [Unknown]
  - Solar lentigo [Unknown]
  - Neurodermatitis [Unknown]
  - Balance disorder [Unknown]
  - Lymphocyte count decreased [Unknown]
  - Low density lipoprotein increased [Unknown]
  - Pollakiuria [Recovered/Resolved]
  - Seborrhoeic keratosis [Unknown]
  - Blood cholesterol increased [Unknown]
  - Urinary tract infection [Unknown]
  - Pain in extremity [Unknown]
  - Urinary incontinence [Recovered/Resolved]
  - Scar [Unknown]
  - Headache [Unknown]
  - Micturition urgency [Recovered/Resolved]

NARRATIVE: CASE EVENT DATE: 20161219
